FAERS Safety Report 10485102 (Version 2)
Quarter: 2014Q3

REPORT INFORMATION
  Report Type: Spontaneous
  Country: PL (occurrence: PL)
  Receive Date: 20140930
  Receipt Date: 20140930
  Transmission Date: 20150326
  Serious: Yes (Hospitalization, Other)
  Sender: FDA-Public Use
  Company Number: PHHY2014PL115767

PATIENT
  Age: 71 Year
  Sex: Female

DRUGS (2)
  1. TASIGNA [Suspect]
     Active Substance: NILOTINIB
     Indication: CHRONIC MYELOID LEUKAEMIA
     Dosage: 200 MG, BID
     Route: 048
     Dates: start: 20121105, end: 20140721
  2. SPRYCEL [Concomitant]
     Active Substance: DASATINIB
     Dosage: 100 MG, QD

REACTIONS (1)
  - Necrosis [Recovered/Resolved with Sequelae]

NARRATIVE: CASE EVENT DATE: 20140610
